FAERS Safety Report 9183460 (Version 1)
Quarter: 2012Q4

REPORT INFORMATION
  Report Type: 
  Country: US (occurrence: US)
  Receive Date: 20121101
  Receipt Date: 20121101
  Transmission Date: 20130627
  Serious: No
  Sender: FDA-Public Use
  Company Number: US-PFIZER INC-2012270104

PATIENT
  Age: 57 Year
  Sex: Male

DRUGS (1)
  1. INLYTA [Suspect]
     Indication: KIDNEY CANCER
     Dosage: 15 mg, 1x/day
     Route: 048
     Dates: start: 20120302

REACTIONS (1)
  - Diarrhoea [Unknown]
